FAERS Safety Report 21448715 (Version 3)
Quarter: 2022Q4

REPORT INFORMATION
  Report Type: Report from Study
  Country: BR (occurrence: BR)
  Receive Date: 20221013
  Receipt Date: 20221019
  Transmission Date: 20230113
  Serious: Yes (Other)
  Sender: FDA-Public Use
  Company Number: BR-ABBVIE-4151478

PATIENT
  Sex: Female
  Weight: 98 kg

DRUGS (2)
  1. RINVOQ [Suspect]
     Active Substance: UPADACITINIB
     Indication: Rheumatoid arthritis
     Dosage: 1 TABLET
     Route: 048
     Dates: start: 20211222
  2. LOSARTAN [Concomitant]
     Active Substance: LOSARTAN
     Indication: Hypertension

REACTIONS (3)
  - Thrombosis [Recovering/Resolving]
  - Pain in extremity [Recovering/Resolving]
  - Peripheral swelling [Recovering/Resolving]
